FAERS Safety Report 8644595 (Version 2)
Quarter: 2012Q4

REPORT INFORMATION
  Report Type: 
  Country: US (occurrence: US)
  Receive Date: 20120629
  Receipt Date: 20121011
  Transmission Date: 20130627
  Serious: Yes (Other)
  Sender: FDA-Public Use
  Company Number: PHEH2012US012802

PATIENT
  Age: 65 Year
  Sex: Female

DRUGS (19)
  1. TASIGNA [Suspect]
     Indication: CHRONIC MYELOID LEUKAEMIA
     Dosage: 400 mg, BID
     Route: 048
     Dates: start: 20111130
  2. GABAPENTIN [Concomitant]
  3. BOSENTAN [Concomitant]
  4. HORIZANT ER [Concomitant]
  5. CALCIUM [Concomitant]
  6. VITAMIN D [Concomitant]
  7. COUMADIN [Concomitant]
  8. CYMBALTA [Concomitant]
  9. OXYGEN [Concomitant]
  10. ZOCOR [Concomitant]
  11. VICODEN [Concomitant]
  12. SYNTHROID [Concomitant]
  13. TRICOR [Concomitant]
  14. METFORMIN [Concomitant]
  15. ASPIRIN [Concomitant]
  16. LISINOPRIL [Concomitant]
  17. ZOFRAN [Concomitant]
  18. PRILOSEC [Concomitant]
  19. CORGARD [Concomitant]

REACTIONS (6)
  - Fall [Unknown]
  - Lower limb fracture [Unknown]
  - Restless legs syndrome [Unknown]
  - Discomfort [Unknown]
  - Limb discomfort [Unknown]
  - Muscle spasms [Unknown]
